FAERS Safety Report 6982094-2 (Version None)
Quarter: 2010Q3

REPORT INFORMATION
  Report Type: 
  Country: None (occurrence: None)
  Receive Date: 20100914
  Receipt Date: 20091201
  Transmission Date: 20110219
  Serious: No
  Sender: FDA-Public Use
  Company Number: US-PFIZER INC-2009304890

PATIENT
  Sex: Female
  Weight: 68.027 kg

DRUGS (18)
  1. LYRICA [Suspect]
     Indication: PAIN
     Dosage: 100 MG, 3X/DAY
     Route: 048
     Dates: start: 20080701
  2. LYRICA [Suspect]
     Indication: BACK DISORDER
  3. LYRICA [Suspect]
     Indication: FIBROMYALGIA
  4. KLONOPIN [Concomitant]
     Indication: ANXIETY
     Dosage: UNK
     Route: 048
  5. SINEQUAN [Concomitant]
     Indication: BIPOLAR DISORDER
     Dosage: UNK
     Route: 048
  6. SINEQUAN [Concomitant]
     Indication: BIPOLAR I DISORDER
  7. PROMETRIUM [Concomitant]
     Dosage: UNK
     Route: 048
  8. ZANAFLEX [Concomitant]
     Indication: NERVE INJURY
     Dosage: UNK
     Route: 048
  9. LEVOTHYROXINE SODIUM [Concomitant]
     Indication: HYPOTHYROIDISM
     Dosage: UNK
     Route: 048
  10. TOPROL-XL [Concomitant]
     Indication: HYPERTENSION
     Dosage: UNK
     Route: 048
  11. CRESTOR [Concomitant]
     Indication: BLOOD CHOLESTEROL INCREASED
     Dosage: UNK
     Route: 048
  12. TRICOR [Concomitant]
     Indication: BLOOD CHOLESTEROL INCREASED
     Dosage: UNK
     Route: 048
  13. NEXIUM [Concomitant]
     Indication: GASTROOESOPHAGEAL REFLUX DISEASE
     Dosage: UNK
     Route: 048
  14. ADVAIR DISKUS 100/50 [Concomitant]
     Indication: EMPHYSEMA
     Dosage: UNK
     Route: 048
  15. ADVAIR DISKUS 100/50 [Concomitant]
     Indication: CHRONIC OBSTRUCTIVE PULMONARY DISEASE
  16. ADVAIR DISKUS 100/50 [Concomitant]
     Indication: ASTHMA
  17. ADVAIR DISKUS 100/50 [Concomitant]
     Indication: GRANULOMA
  18. COMBIVENT [Concomitant]
     Dosage: UNK
     Route: 048

REACTIONS (3)
  - ABNORMAL DREAMS [None]
  - ANXIETY [None]
  - COUGH [None]
